FAERS Safety Report 8872525 (Version 1)
Quarter: 2012Q4

REPORT INFORMATION
  Report Type: 
  Country: US (occurrence: US)
  Receive Date: 20121026
  Receipt Date: 20121026
  Transmission Date: 20130627
  Serious: No
  Sender: FDA-Public Use
  Company Number: US-AMGEN-USASP2012049436

PATIENT
  Age: 51 Year
  Sex: Male
  Weight: 131.52 kg

DRUGS (5)
  1. ENBREL [Suspect]
     Indication: PSORIATIC ARTHROPATHY
     Dosage: 50 mg, qwk
     Route: 058
     Dates: start: 20120707
  2. LISINOPRIL [Concomitant]
     Dosage: 20 mg, UNK
  3. NORVASC [Concomitant]
     Dosage: 10 mg, UNK
  4. ALEVE [Concomitant]
     Dosage: 220 mg, UNK
  5. ALLEGRA [Concomitant]
     Dosage: 30 mg, UNK

REACTIONS (1)
  - Injection site bruising [Recovered/Resolved]
